FAERS Safety Report 20030255 (Version 1)
Quarter: 2021Q4

REPORT INFORMATION
  Report Type: Spontaneous
  Country: MX (occurrence: MX)
  Receive Date: 20211103
  Receipt Date: 20211103
  Transmission Date: 20220303
  Serious: Yes (Hospitalization)
  Sender: FDA-Public Use
  Company Number: MX-AstraZeneca-2021A787262

PATIENT
  Age: 73 Year
  Sex: Female
  Weight: 80 kg

DRUGS (7)
  1. TENORMIN [Suspect]
     Active Substance: ATENOLOL
     Indication: Blood pressure increased
     Dosage: 0.5 DF, 1X/DAY
     Route: 048
  2. AMLODIPINE BESYLATE [Suspect]
     Active Substance: AMLODIPINE BESYLATE
     Indication: Balance disorder
     Dosage: UNK
     Route: 065
  3. HYDROCHLOROTHIAZIDE\VALSARTAN [Concomitant]
     Active Substance: HYDROCHLOROTHIAZIDE\VALSARTAN
     Indication: Product prescribing issue
     Dosage: 160 /12.5 MG,1 TABLET ONCE A DAY
     Route: 048
  4. ASPIRIN [Concomitant]
     Active Substance: ASPIRIN
     Indication: Myocardial infarction
     Dosage: 100 MG 1 TABLET A DAY
     Route: 048
     Dates: start: 2011
  5. VENLAFAXINE [Concomitant]
     Active Substance: VENLAFAXINE HYDROCHLORIDE
     Indication: Depression
     Dosage: 1 TABLET A DAY ORALLY
     Route: 048
  6. ALLOPURINOL [Concomitant]
     Active Substance: ALLOPURINOL
     Indication: Blood uric acid
     Dosage: 1 TABLET A DAY
     Route: 048
  7. AMLODIPINE BESYLATE [Concomitant]
     Active Substance: AMLODIPINE BESYLATE
     Indication: Balance disorder
     Dosage: 1 TABLET A DAY
     Route: 048
     Dates: start: 202102

REACTIONS (1)
  - Umbilical hernia [Unknown]
